FAERS Safety Report 10024989 (Version 1)
Quarter: 2014Q1

REPORT INFORMATION
  Report Type: Spontaneous
  Country: US (occurrence: None)
  Receive Date: 20140318
  Receipt Date: 20140318
  Transmission Date: 20141002
  Serious: Yes (Other)
  Sender: FDA-Public Use
  Company Number: SYM-2014-18340

PATIENT
  Age: 29 Year
  Sex: Male

DRUGS (1)
  1. ALDARA (IMIQUIMOD) (5 PERCENT, CREAM) (IMIQUIMOD) [Suspect]
     Indication: PAPILLOMA VIRAL INFECTION
     Route: 061

REACTIONS (5)
  - Amnesia [None]
  - Vision blurred [None]
  - Hallucination [None]
  - Palpitations [None]
  - Hair colour changes [None]
